FAERS Safety Report 8394972-0 (Version None)
Quarter: 2012Q2

REPORT INFORMATION
  Report Type: 
  Country: None (occurrence: None)
  Receive Date: 20120530
  Receipt Date: 20120220
  Transmission Date: 20120825
  Serious: No
  Sender: FDA-Public Use
  Company Number: US-GLAXOSMITHKLINE-A0967025A

PATIENT
  Age: 32 Year
  Sex: Female

DRUGS (2)
  1. FLOLAN [Suspect]
     Indication: PULMONARY ARTERIAL HYPERTENSION
     Route: 042
     Dates: start: 20100217
  2. REVATIO [Concomitant]
     Dosage: 20MG THREE TIMES PER DAY

REACTIONS (1)
  - BRONCHITIS [None]
